FAERS Safety Report 8216528-2 (Version None)
Quarter: 2012Q1

REPORT INFORMATION
  Report Type: 
  Country: None (occurrence: None)
  Receive Date: 20120316
  Receipt Date: 20120309
  Transmission Date: 20120608
  Serious: Yes (Hospitalization)
  Sender: FDA-Public Use
  Company Number: ES-PFIZER INC-2012064011

PATIENT
  Age: 46 Year
  Sex: Male

DRUGS (6)
  1. MYCOPHENOLATE MOFETIL (CELLCEPT) [Concomitant]
     Indication: RENAL TRANSPLANT
     Dosage: 1500 MG, 1X/DAY
     Route: 048
  2. PANTOPRAZOLE [Concomitant]
     Dosage: 20 MG, 1X/DAY
     Route: 048
     Dates: start: 20091112
  3. ASPIRIN [Concomitant]
     Dosage: 150 MG, 1X/DAY
     Route: 048
     Dates: start: 20091112
  4. PREDNISOLONE [Concomitant]
     Indication: RENAL TRANSPLANT
     Dosage: 5 MG, 1X/DAY
     Route: 048
  5. COROPRES [Concomitant]
     Dosage: 25 MG, 1X/DAY
     Route: 048
     Dates: start: 20091112
  6. RAPAMUNE [Suspect]
     Indication: RENAL TRANSPLANT
     Dosage: 4 MG, 1X/DAY
     Route: 048
     Dates: start: 20091112

REACTIONS (1)
  - GLOMERULOSCLEROSIS [None]
